FAERS Safety Report 8349225-3 (Version None)
Quarter: 2012Q2

REPORT INFORMATION
  Report Type: 
  Country: None (occurrence: None)
  Receive Date: 20120508
  Receipt Date: 20120508
  Transmission Date: 20120825
  Serious: Yes (Life-Threatening, Hospitalization, Other)
  Sender: FDA-Public Use
  Company Number: None

PATIENT
  Age: 76 Year
  Sex: Female
  Weight: 62.5964 kg

DRUGS (1)
  1. METFORMIN HCL [Suspect]
     Indication: TYPE 2 DIABETES MELLITUS
     Dosage: 1 BY MOUTH TWO TIMES DAY
     Dates: start: 20100101, end: 20120101

REACTIONS (14)
  - DYSPNOEA [None]
  - CHEST PAIN [None]
  - LIVER INJURY [None]
  - OEDEMA [None]
  - VISUAL IMPAIRMENT [None]
  - RENAL INJURY [None]
  - MUSCLE ATROPHY [None]
  - GAIT DISTURBANCE [None]
  - CARDIAC DISORDER [None]
  - HEART RATE INCREASED [None]
  - NAUSEA [None]
  - WEIGHT DECREASED [None]
  - PULMONARY OEDEMA [None]
  - EATING DISORDER [None]
